FAERS Safety Report 4591957-7 (Version None)
Quarter: 2005Q1

REPORT INFORMATION
  Report Type: 
  Country: None (occurrence: None)
  Receive Date: 20050222
  Receipt Date: 20050209
  Transmission Date: 20050727
  Serious: Yes (Other)
  Sender: FDA-Public Use
  Company Number: 2005-124998-NL

PATIENT
  Age: 64 Year
  Sex: Female
  Weight: 64 kg

DRUGS (3)
  1. ZEMURON [Suspect]
     Indication: INTUBATION
     Dosage: 100 MG ONCE INTRAVENOUS( NOS)
     Route: 042
     Dates: start: 20050203, end: 20050203
  2. ZEMURON [Suspect]
     Indication: MUSCLE RELAXANT THERAPY
     Dosage: 100 MG ONCE INTRAVENOUS( NOS)
     Route: 042
     Dates: start: 20050203, end: 20050203
  3. SYNTHROID [Concomitant]

REACTIONS (2)
  - ANAESTHETIC COMPLICATION NEUROLOGICAL [None]
  - PARALYSIS [None]
